FAERS Safety Report 6265081-1 (Version None)
Quarter: 2009Q3

REPORT INFORMATION
  Report Type: 
  Country: None (occurrence: None)
  Receive Date: 20090708
  Receipt Date: 20090624
  Transmission Date: 20100115
  Serious: Yes (Other)
  Sender: FDA-Public Use
  Company Number: ACO_00560_2009

PATIENT
  Age: 46 Year
  Sex: Female

DRUGS (3)
  1. TERNELIN (TERNELIN - TIZANIDINE HYDROCHLORIDE) 1 MG (NOT SPECIFIED) [Suspect]
     Indication: CERVICOBRACHIAL SYNDROME
     Dosage: (3 MG ORAL)
     Route: 048
     Dates: start: 20090518, end: 20090525
  2. LOXOPROFEN [Concomitant]
  3. CEFDINIR [Concomitant]

REACTIONS (7)
  - BLOOD PRESSURE INCREASED [None]
  - CARDIAC FAILURE [None]
  - HOT FLUSH [None]
  - HYPOTENSION [None]
  - LOSS OF CONSCIOUSNESS [None]
  - OCULAR HYPERAEMIA [None]
  - OEDEMA PERIPHERAL [None]
